FAERS Safety Report 4349952-9 (Version None)
Quarter: 2004Q2

REPORT INFORMATION
  Report Type: 
  Country: None (occurrence: None)
  Receive Date: 20040428
  Receipt Date: 20040428
  Transmission Date: 20050107
  Serious: Yes (Hospitalization)
  Sender: FDA-Public Use
  Company Number: None

PATIENT
  Sex: Male
  Weight: 67.586 kg

DRUGS (2)
  1. PACLITAXEL [Suspect]
     Indication: NON-SMALL CELL LUNG CANCER
     Dosage: 50 MG/M2 WEEKLY X 6 WEEK INTRAVENOUS
     Route: 042
     Dates: start: 20040301, end: 20040405
  2. CARBOPLATIN [Suspect]
     Indication: NON-SMALL CELL LUNG CANCER
     Dosage: AUC 2 WEEKLY X 6        IV
     Route: 042
     Dates: start: 20040301, end: 20040405

REACTIONS (5)
  - BRONCHIAL OBSTRUCTION [None]
  - DYSPNOEA [None]
  - INCREASED BRONCHIAL SECRETION [None]
  - OBSTRUCTIVE AIRWAYS DISORDER [None]
  - PRODUCTIVE COUGH [None]
